APPROVED DRUG PRODUCT: ARSENIC TRIOXIDE
Active Ingredient: ARSENIC TRIOXIDE
Strength: 2MG/ML
Dosage Form/Route: INJECTABLE;INJECTION
Application: A214011 | Product #001
Applicant: EUGIA PHARMA SPECIALITIES LTD
Approved: Oct 15, 2021 | RLD: No | RS: No | Type: DISCN